FAERS Safety Report 9451425 (Version 1)
Quarter: 2013Q3

REPORT INFORMATION
  Report Type: Spontaneous
  Country: IT (occurrence: IT)
  Receive Date: 20130809
  Receipt Date: 20130809
  Transmission Date: 20140515
  Serious: Yes (Hospitalization)
  Sender: FDA-Public Use
  Company Number: PHHY2013IT083359

PATIENT
  Sex: Male

DRUGS (4)
  1. IRINOTECAN [Suspect]
     Indication: COLON CANCER
     Dosage: 290 MG, UNK
     Route: 042
     Dates: start: 20130404, end: 20130618
  2. FLUOROURACIL [Suspect]
     Indication: COLON CANCER
     Dosage: 290 MG, UNK
     Route: 042
     Dates: start: 20130404, end: 20130618
  3. TIKLID [Concomitant]
  4. OMNIC [Concomitant]

REACTIONS (1)
  - Peripheral motor neuropathy [Unknown]
